FAERS Safety Report 6122250-9 (Version None)
Quarter: 2009Q1

REPORT INFORMATION
  Report Type: 
  Country: None (occurrence: None)
  Receive Date: 20090316
  Receipt Date: 20090302
  Transmission Date: 20090719
  Serious: Yes (Death)
  Sender: FDA-Public Use
  Company Number: POMP-1000506

PATIENT
  Age: 7 Year
  Sex: Female
  Weight: 17.5 kg

DRUGS (1)
  1. MYOZYME [Suspect]
     Indication: GLYCOGEN STORAGE DISEASE TYPE II
     Dosage: 20 MG/KG, INTRAVENOUS
     Route: 042
     Dates: end: 20081228

REACTIONS (4)
  - ARRHYTHMIA [None]
  - CYANOSIS [None]
  - PULSE ABSENT [None]
  - SUDDEN DEATH [None]
